FAERS Safety Report 4491274-X (Version None)
Quarter: 2004Q4

REPORT INFORMATION
  Report Type: 
  Country: None (occurrence: None)
  Receive Date: 20041028
  Receipt Date: 20041018
  Transmission Date: 20050328
  Serious: Yes (Hospitalization)
  Sender: FDA-Public Use
  Company Number: 2004PK01743

PATIENT
  Age: 46 Year
  Sex: Male

DRUGS (31)
  1. SEROQUEL [Suspect]
     Dosage: 400 TO 800 MG
     Dates: start: 20040729, end: 20040803
  2. SEROQUEL [Suspect]
     Dosage: 400 MG DAILY PO
     Route: 048
     Dates: start: 20040816
  3. LEPONEX [Suspect]
     Dosage: 200 TO 300 MG
     Dates: start: 20040601, end: 20040606
  4. LEPONEX [Suspect]
     Dosage: 100 TO 150 MG
     Dates: start: 20040604, end: 20040610
  5. LEPONEX [Suspect]
     Dosage: 75 MG DAILY PO
     Route: 048
     Dates: start: 20040611, end: 20040611
  6. LEPONEX [Suspect]
     Dosage: 50 MG DAILY PO
     Route: 048
     Dates: start: 20040612, end: 20040612
  7. LEPONEX [Suspect]
     Dosage: 25 MG DAILY PO
     Route: 048
     Dates: start: 20040613, end: 20040615
  8. LEPONEX [Suspect]
     Dosage: 0 MG DAILY PO
     Route: 048
     Dates: start: 20040616, end: 20040624
  9. LEPONEX [Suspect]
     Dosage: 12.5 MG DAILY PO
     Route: 048
     Dates: start: 20040625, end: 20040721
  10. ABILIFY [Suspect]
     Dosage: 7.5 MG DAILY PO
     Route: 048
     Dates: start: 20040607, end: 20040609
  11. ABILIFY [Suspect]
     Dosage: 15 MG DAILY PO
     Route: 048
     Dates: start: 20040610, end: 20040612
  12. ABILIFY [Suspect]
     Dosage: 22.5 MG DAILY PO
     Route: 048
     Dates: start: 20040613, end: 20040615
  13. ABILIFY [Suspect]
     Dosage: 30 MG DAILY PO
     Route: 048
     Dates: start: 20040616, end: 20040620
  14. ABILIFY [Suspect]
     Dosage: 30.75 MG DAILY PO
     Route: 048
     Dates: start: 20040621, end: 20040628
  15. ABILIFY [Suspect]
     Dosage: 0 MG DAILY PO
     Route: 048
     Dates: start: 20040629, end: 20040804
  16. ABILIFY [Suspect]
     Dosage: 15 MG DAILY PO
     Route: 048
     Dates: start: 20040805, end: 20040806
  17. ABILIFY [Suspect]
     Dosage: 30 MG DAILY PO
     Route: 048
     Dates: start: 20040807, end: 20040809
  18. ABILIFY [Suspect]
     Dosage: 37.5 MG DAILY PO
     Route: 048
     Dates: start: 20040810, end: 20040810
  19. MADOPAR [Suspect]
     Dosage: 62.5 MG DAILY PO
     Route: 048
     Dates: start: 20040624, end: 20040625
  20. MADOPAR [Suspect]
     Dosage: 125 MG DAILY PO
     Route: 048
     Dates: start: 20040626, end: 20040715
  21. MADOPAR [Suspect]
     Dosage: 187.5 MG DAILY PO
     Route: 048
     Dates: start: 20040716, end: 20040725
  22. MADOPAR [Suspect]
     Dosage: 250 MG DAILY PO
     Route: 048
     Dates: start: 20040726, end: 20040726
  23. MADOPAR [Suspect]
     Dosage: 187.5 MG DAILY PO
     Route: 048
     Dates: start: 20040727, end: 20040727
  24. MADOPAR [Suspect]
     Dosage: 125 MG DAILY PO
     Route: 048
     Dates: start: 20040728, end: 20040728
  25. MADOPAR [Suspect]
     Dosage: 67.5 MG DAILY PO
     Route: 048
     Dates: start: 20040729, end: 20040729
  26. MADOPAR [Suspect]
     Dosage: 0 MG DAILY PO
     Route: 048
     Dates: start: 20040730, end: 20040812
  27. MADOPAR [Suspect]
     Dosage: 187.5 MG DAILY PO
     Route: 048
     Dates: start: 20040813, end: 20040816
  28. MADOPAR [Suspect]
     Dosage: 250 MG DAILY PO
     Route: 048
     Dates: start: 20040817
  29. SINEMET CR [Suspect]
     Dosage: 200 DAILY
     Dates: start: 20040731, end: 20040802
  30. SINEMET CR [Suspect]
     Dosage: 400 DAILY
     Dates: start: 20040803, end: 20040809
  31. SINEMET CR [Suspect]
     Dosage: 600 DAILY
     Dates: start: 20040810, end: 20040810

REACTIONS (2)
  - LEUKOPENIA [None]
  - NEUTROPENIA [None]
